FAERS Safety Report 17618226 (Version 2)
Quarter: 2021Q1

REPORT INFORMATION
  Report Type: Spontaneous
  Country: US (occurrence: US)
  Receive Date: 20200402
  Receipt Date: 20210123
  Transmission Date: 20210419
  Serious: Yes (Hospitalization, Other)
  Sender: FDA-Public Use
  Company Number: US-ROCHE-2471731

PATIENT
  Sex: Male
  Weight: 86.18 kg

DRUGS (1)
  1. ERIVEDGE [Suspect]
     Active Substance: VISMODEGIB
     Indication: BASAL CELL CARCINOMA
     Route: 048
     Dates: start: 20190508

REACTIONS (8)
  - Pain [Unknown]
  - Appendicitis perforated [Recovered/Resolved]
  - Hair growth abnormal [Recovered/Resolved]
  - Muscle spasms [Recovered/Resolved]
  - Alopecia [Recovered/Resolved]
  - Fatigue [Unknown]
  - Taste disorder [Unknown]
  - Dizziness [Not Recovered/Not Resolved]
